FAERS Safety Report 5189691-8 (Version None)
Quarter: 2006Q4

REPORT INFORMATION
  Report Type: 
  Country: None (occurrence: None)
  Receive Date: 20061215
  Receipt Date: 20061211
  Transmission Date: 20070319
  Serious: No
  Sender: FDA-Public Use
  Company Number: 230644

PATIENT
  Age: 50 Year
  Sex: Female
  Weight: 83.4 kg

DRUGS (12)
  1. XOLAIR [Suspect]
     Indication: ASTHMA
     Dosage: 300 MG, Q4W, SUBCUTANEOUS
     Route: 058
     Dates: start: 20060721, end: 20060824
  2. SINGULAIR [Concomitant]
  3. ZYRTEC [Concomitant]
  4. SEREVENT [Concomitant]
  5. PULMICORT [Concomitant]
  6. NEXIUM [Concomitant]
  7. EPIPEN (EPINEPHRINE) [Concomitant]
  8. XOPENEX [Concomitant]
  9. ISONIAZID [Concomitant]
  10. KLONOPIN [Concomitant]
  11. THYROID SUPPLEMENT (THYROID DRUG NOS) [Concomitant]
  12. PROGESTERONE TYPE COMPOUND (PROGESTERONE TYPE COMPOUND) [Concomitant]

REACTIONS (5)
  - ACTIVATED PARTIAL THROMBOPLASTIN TIME PROLONGED [None]
  - ARTHRALGIA [None]
  - INCREASED TENDENCY TO BRUISE [None]
  - MIDDLE INSOMNIA [None]
  - PLATELET COUNT DECREASED [None]
